FAERS Safety Report 4329137-2 (Version None)
Quarter: 2004Q1

REPORT INFORMATION
  Report Type: 
  Country: None (occurrence: None)
  Receive Date: 20040319
  Receipt Date: 20031120
  Transmission Date: 20041129
  Serious: No
  Sender: FDA-Public Use
  Company Number: US-JNJFOC-20031104474

PATIENT
  Age: 28 Year
  Sex: Female
  Weight: 58.9676 kg

DRUGS (4)
  1. ORTHO EVRA [Suspect]
     Indication: CONTRACEPTION
     Dosage: 1 DOSE(S), 3 IN 4 WEEK, TRANSDERMAL
     Route: 062
     Dates: start: 20031019
  2. PAXIL [Concomitant]
  3. ALLEGRA-D [Concomitant]
  4. ADVAIR (SERETIDE MITE) [Concomitant]

REACTIONS (2)
  - MENORRHAGIA [None]
  - SINUSITIS [None]
